FAERS Safety Report 9856132 (Version 2)
Quarter: 2014Q1

REPORT INFORMATION
  Report Type: Spontaneous
  Country: NL (occurrence: NL)
  Receive Date: 20140130
  Receipt Date: 20140213
  Transmission Date: 20141002
  Serious: Yes (Life-Threatening)
  Sender: FDA-Public Use
  Company Number: NL-ASTRAZENECA-2014SE05812

PATIENT
  Age: 45 Year
  Sex: Male
  Weight: 102 kg

DRUGS (12)
  1. METOPROLOL SUCCINATE [Suspect]
     Indication: ARRHYTHMIA
     Route: 048
     Dates: start: 201003
  2. METOPROLOL SUCCINAAT [Interacting]
     Indication: ARRHYTHMIA
     Route: 048
     Dates: start: 20121119, end: 20121221
  3. METOPROLOL SUCCINAAT [Interacting]
     Indication: ARRHYTHMIA
     Route: 048
     Dates: start: 20121221, end: 20130116
  4. METOPROLOL SUCCINAAT [Interacting]
     Indication: ARRHYTHMIA
     Route: 048
     Dates: start: 20130127, end: 20130403
  5. METOPROLOL SUCCINAAT [Interacting]
     Indication: ARRHYTHMIA
     Route: 048
     Dates: start: 20130401
  6. METOPROLOL SUCCINAAT [Interacting]
     Indication: ARRHYTHMIA
     Route: 048
  7. KINIDINE DRAGEE 200MG [Interacting]
     Indication: ARRHYTHMIA
     Route: 048
  8. KINIDINE DRAGEE 200MG [Interacting]
     Indication: ARRHYTHMIA
     Route: 048
     Dates: start: 20130401
  9. ACETYLSALICYLZUUR [Concomitant]
     Indication: ARRHYTHMIA
     Route: 048
     Dates: start: 20100315
  10. METOPROLOL [Concomitant]
     Dates: start: 20100423, end: 20100614
  11. METOPROLOL [Concomitant]
     Dates: start: 20100614, end: 20110303
  12. METOPROLOL [Concomitant]
     Dates: start: 20110303, end: 20121119

REACTIONS (7)
  - Drug interaction [Recovering/Resolving]
  - Ventricular tachycardia [Recovering/Resolving]
  - Pain in extremity [Unknown]
  - Amnesia [Unknown]
  - Peripheral coldness [Unknown]
  - Bradycardia [Unknown]
  - Palpitations [Unknown]
